FAERS Safety Report 17111415 (Version 2)
Quarter: 2019Q4

REPORT INFORMATION
  Report Type: Spontaneous
  Country: GB (occurrence: GB)
  Receive Date: 20191204
  Receipt Date: 20191211
  Transmission Date: 20200122
  Serious: Yes (Other)
  Sender: FDA-Public Use
  Company Number: GB-JNJFOC-20191136622

PATIENT
  Age: 48 Year
  Sex: Female

DRUGS (2)
  1. EFFENTORA [Suspect]
     Active Substance: FENTANYL CITRATE
     Indication: TRIGEMINAL NEURALGIA
     Dosage: FOR AT LEAST THREE YEARS
     Route: 065
  2. DUROGESIC D-TRANS [Suspect]
     Active Substance: FENTANYL
     Indication: PRODUCT USED FOR UNKNOWN INDICATION
     Route: 062

REACTIONS (23)
  - Akathisia [Recovering/Resolving]
  - Drug dependence [Recovering/Resolving]
  - Anger [Recovering/Resolving]
  - Irritability [Unknown]
  - General physical health deterioration [Recovering/Resolving]
  - Hypophagia [Recovering/Resolving]
  - Product quality issue [Unknown]
  - Near death experience [Unknown]
  - Feeling abnormal [Unknown]
  - Product communication issue [Unknown]
  - Crying [Recovering/Resolving]
  - Anxiety [Recovering/Resolving]
  - Patient dissatisfaction with treatment [Unknown]
  - Drug hypersensitivity [Recovering/Resolving]
  - Affect lability [Recovering/Resolving]
  - Withdrawal syndrome [Recovering/Resolving]
  - Paranoia [Recovering/Resolving]
  - Dermal absorption impaired [Recovering/Resolving]
  - Product label issue [Unknown]
  - Hyperaesthesia [Recovering/Resolving]
  - Dysphoria [Recovering/Resolving]
  - Emotional distress [Unknown]
  - Feelings of worthlessness [Recovering/Resolving]

NARRATIVE: CASE EVENT DATE: 201809
